FAERS Safety Report 4694541-X (Version None)
Quarter: 2005Q2

REPORT INFORMATION
  Report Type: 
  Country: None (occurrence: None)
  Receive Date: 20050620
  Receipt Date: 20050309
  Transmission Date: 20051028
  Serious: Yes (Death, Hospitalization)
  Sender: FDA-Public Use
  Company Number: US-MERCK-0503USA02046

PATIENT
  Age: 37 Year
  Sex: Male
  Weight: 84 kg

DRUGS (10)
  1. VIOXX [Suspect]
     Indication: ARTHRITIS
     Route: 048
     Dates: start: 20031201, end: 20040829
  2. VIOXX [Suspect]
     Route: 048
     Dates: start: 20031201, end: 20040829
  3. VIOXX [Suspect]
     Route: 048
     Dates: start: 20031201, end: 20040829
  4. METHOTREXATE [Concomitant]
     Indication: INFLAMMATION
     Route: 065
  5. METHOTREXATE [Concomitant]
     Route: 065
     Dates: start: 20040201, end: 20040801
  6. METHOTREXATE [Concomitant]
     Indication: PAIN
     Route: 065
  7. METHOTREXATE [Concomitant]
     Route: 065
     Dates: start: 20040201, end: 20040801
  8. PREDNISONE [Concomitant]
     Indication: INFLAMMATION
     Route: 065
  9. TYLENOL [Concomitant]
     Route: 065
  10. IBUPROFEN [Concomitant]
     Route: 065

REACTIONS (15)
  - ABDOMINAL PAIN UPPER [None]
  - ACCIDENTAL OVERDOSE [None]
  - CORONARY ARTERY ATHEROSCLEROSIS [None]
  - DYSPEPSIA [None]
  - GASTRIC ULCER [None]
  - HYPOAESTHESIA [None]
  - JOINT EFFUSION [None]
  - JOINT SWELLING [None]
  - LIPOMA [None]
  - LYMPHOEDEMA [None]
  - MYOCARDIAL INFARCTION [None]
  - RASH [None]
  - RHEUMATOID ARTHRITIS [None]
  - TOOTH ABSCESS [None]
  - UPPER GASTROINTESTINAL HAEMORRHAGE [None]
